FAERS Safety Report 6682890-5 (Version None)
Quarter: 2010Q2

REPORT INFORMATION
  Report Type: 
  Country: None (occurrence: None)
  Receive Date: 20100415
  Receipt Date: 20100412
  Transmission Date: 20101027
  Serious: Yes (Other)
  Sender: FDA-Public Use
  Company Number: A0855053A

PATIENT
  Sex: Female
  Weight: 65 kg

DRUGS (1)
  1. SERETIDE [Suspect]
     Indication: ASTHMA
     Dosage: 1PUFF AT NIGHT
     Route: 055
     Dates: start: 20070101

REACTIONS (4)
  - ASTHMA [None]
  - DRUG INEFFECTIVE [None]
  - INFLUENZA [None]
  - PRODUCT QUALITY ISSUE [None]
